FAERS Safety Report 5357334-6 (Version None)
Quarter: 2007Q2

REPORT INFORMATION
  Report Type: 
  Country: None (occurrence: None)
  Receive Date: 20070614
  Receipt Date: 20070606
  Transmission Date: 20071010
  Serious: Yes (Hospitalization)
  Sender: FDA-Public Use
  Company Number: A0648066A

PATIENT
  Age: 70 Year
  Sex: Female
  Weight: 81 kg

DRUGS (9)
  1. AVANDAMET [Suspect]
     Indication: DIABETES MELLITUS NON-INSULIN-DEPENDENT
     Route: 048
  2. ADALAT [Suspect]
  3. CELEBREX [Concomitant]
     Dosage: 200MG AS REQUIRED
  4. LASIX [Concomitant]
     Indication: DIURETIC THERAPY
  5. GLUCOPHAGE [Concomitant]
     Dates: start: 19960101
  6. UNSPECIFIED HYPOTHYROID MEDICATION [Concomitant]
  7. PANTOPRAZOLE SODIUM [Concomitant]
  8. AVALIDE [Concomitant]
  9. MOTILIUM [Concomitant]

REACTIONS (7)
  - DYSPNOEA [None]
  - FACE OEDEMA [None]
  - GENERALISED OEDEMA [None]
  - OEDEMA [None]
  - OEDEMA PERIPHERAL [None]
  - SWELLING FACE [None]
  - WEIGHT INCREASED [None]
